FAERS Safety Report 7507251-8 (Version None)
Quarter: 2011Q2

REPORT INFORMATION
  Report Type: 
  Country: None (occurrence: None)
  Receive Date: 20110526
  Receipt Date: 20110524
  Transmission Date: 20111010
  Serious: Yes (Death)
  Sender: FDA-Public Use
  Company Number: US-B.I. PHARMACEUTICALS,INC./RIDGEFIELD-2011-BP-13837BP

PATIENT
  Age: 92 Year
  Sex: Female

DRUGS (7)
  1. PRADAXA [Suspect]
     Indication: ATRIAL FIBRILLATION
     Dosage: 300 MG
     Route: 048
     Dates: start: 20110511, end: 20110519
  2. CRESTOR [Concomitant]
     Indication: BLOOD CHOLESTEROL INCREASED
     Dosage: 10 MG
     Route: 048
  3. PROTONIX [Concomitant]
     Indication: GASTROOESOPHAGEAL REFLUX DISEASE
     Dosage: 40 MG
     Route: 048
  4. MICARDIS [Suspect]
     Indication: HYPERTENSION
     Dosage: 40 MG
     Route: 048
  5. COMBIVENT [Concomitant]
     Indication: ASTHMA
     Dosage: 40 MG
     Route: 048
  6. SYNTHROID [Concomitant]
     Indication: HYPOTHYROIDISM
     Dosage: 112 MCG
     Route: 048
  7. TRAMADOL HCL [Concomitant]
     Indication: OSTEOARTHRITIS
     Dosage: 100 MG
     Route: 048

REACTIONS (3)
  - HAEMATOCHEZIA [None]
  - BRAIN STEM INFARCTION [None]
  - HAEMOGLOBIN DECREASED [None]
